FAERS Safety Report 20430071 (Version 1)
Quarter: 2022Q1

REPORT INFORMATION
  Report Type: Report from Study
  Country: US (occurrence: US)
  Receive Date: 20220204
  Receipt Date: 20220204
  Transmission Date: 20220423
  Serious: Yes (Life-Threatening, Hospitalization)
  Sender: FDA-Public Use
  Company Number: 18P-163-2427737-00

PATIENT

DRUGS (23)
  1. ONCASPAR [Suspect]
     Active Substance: PEGASPARGASE
     Indication: Acute lymphocytic leukaemia
     Dosage: 1250 IU/M2
     Route: 042
     Dates: start: 20180710, end: 20191204
  2. VENETOCLAX [Suspect]
     Active Substance: VENETOCLAX
     Indication: Acute lymphocytic leukaemia
     Dosage: 200 MG, QD
     Route: 048
     Dates: start: 20180702, end: 20180702
  3. VENETOCLAX [Suspect]
     Active Substance: VENETOCLAX
     Dosage: 400 MG, QD
     Route: 048
     Dates: start: 20180703, end: 20180729
  4. VENETOCLAX [Suspect]
     Active Substance: VENETOCLAX
     Dosage: 50 MG, QD
     Route: 048
     Dates: start: 20180828
  5. NAVITOCLAX [Suspect]
     Active Substance: NAVITOCLAX
     Indication: Acute lymphocytic leukaemia
     Dosage: 25 MG, QD
     Route: 048
     Dates: start: 20180704
  6. VINCRISTINE [Suspect]
     Active Substance: VINCRISTINE
     Indication: Acute lymphocytic leukaemia
     Dosage: 1.5 MG/M2
     Route: 042
     Dates: start: 20180710
  7. DEXAMETHASONE SODIUM SUCCINATE [Suspect]
     Active Substance: DEXAMETHASONE SODIUM SUCCINATE
     Indication: Acute lymphocytic leukaemia
     Dosage: 40 MG, QD
     Route: 048
     Dates: start: 20180710
  8. TN UNSPECIFIED [Concomitant]
     Indication: Antiviral treatment
     Dosage: 800 MG, QD
     Route: 048
     Dates: start: 20180508
  9. TN UNSPECIFIED [Concomitant]
     Indication: Hyperuricaemia
     Dosage: 300 MG, QD
     Route: 048
     Dates: start: 20180701
  10. LIORESAL [Concomitant]
     Active Substance: BACLOFEN
     Indication: Hiccups
     Dosage: 10 MG, QD
     Route: 048
     Dates: start: 20180711
  11. MARINOL [Concomitant]
     Active Substance: DRONABINOL
     Indication: Decreased appetite
     Dosage: 10 MG, QD
     Route: 048
     Dates: start: 20180607
  12. PEPCID [Concomitant]
     Active Substance: FAMOTIDINE
     Indication: Prophylaxis
     Dosage: 20 MG, QD
     Route: 048
     Dates: start: 20171030
  13. ATIVAN [Concomitant]
     Active Substance: LORAZEPAM
     Indication: Insomnia
     Dosage: 1 MG, PRN
     Route: 048
     Dates: start: 20180803
  14. ATIVAN [Concomitant]
     Active Substance: LORAZEPAM
     Indication: Anxiety
  15. MORPHINE SULFATE [Concomitant]
     Active Substance: MORPHINE SULFATE
     Indication: Back pain
     Dosage: 15 MG, PRN
     Route: 048
     Dates: start: 20180709
  16. MORPHINE SULFATE [Concomitant]
     Active Substance: MORPHINE SULFATE
     Indication: Chest pain
  17. ZOFRAN [Concomitant]
     Active Substance: ONDANSETRON HYDROCHLORIDE
     Indication: Nausea
     Dosage: 8 MG, PRN
     Route: 048
     Dates: start: 20180711
  18. MIRALAX [Concomitant]
     Active Substance: POLYETHYLENE GLYCOL 3350
     Indication: Constipation
     Dosage: 17 G, PRN
     Route: 048
     Dates: start: 20180712
  19. LOPRESSOR [Concomitant]
     Active Substance: METOPROLOL TARTRATE
     Indication: Hypertension
     Dosage: 25 MG, QD
     Route: 048
     Dates: start: 20181026
  20. COMPAZINE [Concomitant]
     Active Substance: PROCHLORPERAZINE MALEATE
     Indication: Nausea
     Dosage: 10 MG, PRN
     Dates: start: 20180627
  21. ULTRAM [Concomitant]
     Active Substance: TRAMADOL HYDROCHLORIDE
     Indication: Non-cardiac chest pain
     Dosage: 50 MG, PRN
     Route: 048
     Dates: start: 20180706
  22. ULTRAM [Concomitant]
     Active Substance: TRAMADOL HYDROCHLORIDE
     Indication: Back pain
  23. ZYRTEC [Concomitant]
     Active Substance: CETIRIZINE HYDROCHLORIDE
     Indication: Allergy prophylaxis
     Dosage: 10 MG, QD
     Route: 048
     Dates: start: 20181112

REACTIONS (3)
  - Febrile neutropenia [Recovered/Resolved]
  - Pneumonia [Recovered/Resolved]
  - Pneumonitis [Recovered/Resolved]

NARRATIVE: CASE EVENT DATE: 20180719
